FAERS Safety Report 26127705 (Version 2)
Quarter: 2025Q4

REPORT INFORMATION
  Report Type: Report from Study
  Country: CO (occurrence: CO)
  Receive Date: 20251206
  Receipt Date: 20251209
  Transmission Date: 20260117
  Serious: Yes (Hospitalization, Other)
  Sender: SANOFI AVENTIS
  Company Number: CO-SA-2025SA269128

PATIENT
  Age: 49 Year
  Sex: Female

DRUGS (3)
  1. DUPILUMAB [Suspect]
     Active Substance: DUPILUMAB
     Indication: Asthma
     Dosage: 200 MG, QOW
     Route: 058
     Dates: start: 20231025, end: 2025
  2. DUPILUMAB [Suspect]
     Active Substance: DUPILUMAB
     Dosage: 200 MG, QOW
     Route: 058
     Dates: start: 20250822, end: 20251110
  3. ALBUTEROL [Concomitant]
     Active Substance: ALBUTEROL
     Dosage: THREE TO FOUR TIMES PER DAY

REACTIONS (11)
  - Bronchitis [Recovering/Resolving]
  - Asthmatic crisis [Recovering/Resolving]
  - Tuberculosis [Recovering/Resolving]
  - Nausea [Not Recovered/Not Resolved]
  - Abdominal discomfort [Recovering/Resolving]
  - Diarrhoea [Not Recovered/Not Resolved]
  - Heart rate decreased [Unknown]
  - Feeling cold [Unknown]
  - Cold sweat [Unknown]
  - Dizziness [Unknown]
  - Vision blurred [Unknown]

NARRATIVE: CASE EVENT DATE: 20250101
